FAERS Safety Report 14391576 (Version 1)
Quarter: 2018Q1

REPORT INFORMATION
  Report Type: Spontaneous
  Country: IN (occurrence: IN)
  Receive Date: 20180116
  Receipt Date: 20180116
  Transmission Date: 20180509
  Serious: Yes (Death)
  Sender: FDA-Public Use
  Company Number: PHHY2018IN005772

PATIENT
  Sex: Female

DRUGS (1)
  1. TYKERB [Suspect]
     Active Substance: LAPATINIB DITOSYLATE
     Indication: BREAST CANCER
     Dosage: 1000 MG, UNK
     Route: 048
     Dates: start: 20141224

REACTIONS (1)
  - Death [Fatal]

NARRATIVE: CASE EVENT DATE: 20170817
